FAERS Safety Report 8202322-5 (Version None)
Quarter: 2012Q1

REPORT INFORMATION
  Report Type: 
  Country: None (occurrence: None)
  Receive Date: 20120312
  Receipt Date: 20120307
  Transmission Date: 20120608
  Serious: Yes (Other)
  Sender: FDA-Public Use
  Company Number: PHHY2012JP020305

PATIENT

DRUGS (2)
  1. DIOVAN [Suspect]
     Dosage: 80 MG, DAILY
     Route: 048
  2. DIOVAN [Suspect]
     Dosage: 40 MG, DAILY
     Route: 048

REACTIONS (2)
  - CEREBRAL INFARCTION [None]
  - BLOOD PRESSURE DECREASED [None]
